FAERS Safety Report 18320088 (Version 1)
Quarter: 2020Q3

REPORT INFORMATION
  Report Type: Spontaneous
  Country: TR (occurrence: TR)
  Receive Date: 20200928
  Receipt Date: 20200928
  Transmission Date: 20201103
  Serious: Yes (Hospitalization, Other)
  Sender: FDA-Public Use
  Company Number: TR-SUN PHARMACEUTICAL INDUSTRIES LTD-2020RR-261472

PATIENT
  Age: 68 Year
  Sex: Female

DRUGS (5)
  1. ESCITALOPRAM [Interacting]
     Active Substance: ESCITALOPRAM OXALATE
     Indication: ANTIDEPRESSANT THERAPY
     Dosage: 20 MILLIGRAM, UNK
     Route: 065
  2. COBIMETINIB. [Interacting]
     Active Substance: COBIMETINIB
     Indication: MALIGNANT MELANOMA
     Dosage: UNK
     Route: 065
  3. CIPROFLOXACIN. [Suspect]
     Active Substance: CIPROFLOXACIN
     Indication: CHOLECYSTITIS INFECTIVE
     Dosage: UNK
     Route: 065
  4. VEMURAFENIB. [Interacting]
     Active Substance: VEMURAFENIB
     Indication: MALIGNANT MELANOMA
     Dosage: UNK
     Route: 065
  5. MIRTAZAPINE. [Interacting]
     Active Substance: MIRTAZAPINE
     Indication: ANTIDEPRESSANT THERAPY
     Dosage: 30 MILLIGRAM, UNK
     Route: 065

REACTIONS (5)
  - Torsade de pointes [Unknown]
  - Presyncope [Unknown]
  - Drug interaction [Unknown]
  - Hypokalaemia [Not Recovered/Not Resolved]
  - Electrocardiogram QT prolonged [Not Recovered/Not Resolved]
